FAERS Safety Report 18655131 (Version 1)
Quarter: 2020Q4

REPORT INFORMATION
  Report Type: Spontaneous
  Country: US (occurrence: US)
  Receive Date: 20201223
  Receipt Date: 20201223
  Transmission Date: 20210114
  Serious: Yes (Other)
  Sender: FDA-Public Use
  Company Number: US-COOPERSURGICAL, INC.-US-2019CPS003837

PATIENT
  Age: 41 Year
  Sex: Female
  Weight: 66.17 kg

DRUGS (1)
  1. PARAGARD T 380A [Suspect]
     Active Substance: COPPER
     Indication: CONTRACEPTION
     Dosage: UNK
     Route: 015
     Dates: start: 20090529

REACTIONS (3)
  - Device breakage [Unknown]
  - Complication of device removal [Unknown]
  - Foreign body in reproductive tract [Unknown]

NARRATIVE: CASE EVENT DATE: 20190320
